FAERS Safety Report 10517033 (Version 1)
Quarter: 2014Q4

REPORT INFORMATION
  Report Type: Spontaneous
  Country: FR (occurrence: NL)
  Receive Date: 20141014
  Receipt Date: 20141014
  Transmission Date: 20150528
  Serious: Yes (Other)
  Sender: FDA-Public Use
  Company Number: FR-MYLANLABS-2014M1006708

PATIENT

DRUGS (3)
  1. MERCAPTAMINE BITARTRATE [Suspect]
     Active Substance: CYSTEAMINE
     Dosage: UNK
     Route: 048
     Dates: end: 20060704
  2. MERCAPTAMINE BITARTRATE [Suspect]
     Active Substance: CYSTEAMINE
     Dosage: UNK
     Route: 048
     Dates: start: 20061001, end: 20061106
  3. MERCAPTAMINE BITARTRATE [Suspect]
     Active Substance: CYSTEAMINE
     Indication: CYSTINOSIS
     Dosage: UNK
     Route: 048
     Dates: start: 20050901

REACTIONS (1)
  - Autism spectrum disorder [Not Recovered/Not Resolved]
